FAERS Safety Report 6691004-7 (Version None)
Quarter: 2010Q2

REPORT INFORMATION
  Report Type: 
  Country: None (occurrence: None)
  Receive Date: 20100421
  Receipt Date: 20100413
  Transmission Date: 20101027
  Serious: Yes (Other)
  Sender: FDA-Public Use
  Company Number: US-MERCK-1001USA00164

PATIENT
  Age: 76 Year
  Sex: Female

DRUGS (1)
  1. FOSAMAX [Suspect]
     Indication: OSTEOPOROSIS
     Route: 048
     Dates: start: 20020101, end: 20060101

REACTIONS (9)
  - BACK PAIN [None]
  - BONE METABOLISM DISORDER [None]
  - DYSKINESIA OESOPHAGEAL [None]
  - HIP FRACTURE [None]
  - OESOPHAGEAL STENOSIS [None]
  - OSTEOARTHRITIS [None]
  - SPINAL FRACTURE [None]
  - TOOTH DISORDER [None]
  - VITAMIN D DEFICIENCY [None]
